FAERS Safety Report 9119910 (Version 4)
Quarter: 2013Q2

REPORT INFORMATION
  Report Type: Spontaneous
  Country: JP (occurrence: JP)
  Receive Date: 20130226
  Receipt Date: 20130604
  Transmission Date: 20140414
  Serious: Yes (Hospitalization)
  Sender: FDA-Public Use
  Company Number: JP-ELI_LILLY_AND_COMPANY-JP201302005381

PATIENT
  Age: 62 Year
  Sex: Male
  Weight: 44.6 kg

DRUGS (2)
  1. FORTEO [Suspect]
     Indication: OSTEOPOROSIS
     Dosage: 20 UG, QD
     Route: 058
     Dates: start: 20130110, end: 20130206
  2. VITAMINE D VOOR SENIOREN [Concomitant]
     Indication: SPINAL FRACTURE
     Dosage: 0.75 UG, QD
     Route: 048
     Dates: start: 20121227, end: 20130206

REACTIONS (3)
  - Altered state of consciousness [Recovering/Resolving]
  - Bacteraemia [Recovering/Resolving]
  - Hypercalcaemia [Recovering/Resolving]
